FAERS Safety Report 13058415 (Version 2)
Quarter: 2017Q1

REPORT INFORMATION
  Report Type: Spontaneous
  Country: US (occurrence: US)
  Receive Date: 20161223
  Receipt Date: 20170112
  Transmission Date: 20170428
  Serious: No
  Sender: FDA-Public Use
  Company Number: US-PFIZER INC-2016591218

PATIENT
  Age: 64 Year
  Sex: Male

DRUGS (5)
  1. ADVIL [Suspect]
     Active Substance: IBUPROFEN
     Indication: INSOMNIA
  2. ADVIL [Suspect]
     Active Substance: IBUPROFEN
     Indication: JOINT INJURY
     Dosage: 4 DF, UNK
     Dates: start: 201609, end: 201609
  3. ADVIL [Suspect]
     Active Substance: IBUPROFEN
     Indication: JOINT INJURY
     Dosage: UNK
     Dates: start: 201609, end: 201609
  4. ADVIL [Suspect]
     Active Substance: IBUPROFEN
     Indication: INSOMNIA
  5. ADVIL [Suspect]
     Active Substance: IBUPROFEN
     Indication: LIGAMENT SPRAIN

REACTIONS (6)
  - Feeling abnormal [Unknown]
  - Rash [Not Recovered/Not Resolved]
  - Pruritus [Not Recovered/Not Resolved]
  - Urticaria [Not Recovered/Not Resolved]
  - Somnolence [Unknown]
  - Drug ineffective for unapproved indication [Unknown]

NARRATIVE: CASE EVENT DATE: 201609
